FAERS Safety Report 19996392 (Version 1)
Quarter: 2021Q4

REPORT INFORMATION
  Report Type: Spontaneous
  Country: GB (occurrence: GB)
  Receive Date: 20211026
  Receipt Date: 20211026
  Transmission Date: 20220304
  Serious: Yes (Other)
  Sender: FDA-Public Use
  Company Number: None

PATIENT
  Age: 33 Year
  Sex: Female
  Weight: 53.45 kg

DRUGS (1)
  1. SERTRALINE [Suspect]
     Active Substance: SERTRALINE HYDROCHLORIDE
     Indication: Depression
     Dosage: 50 MILLIGRAM
     Route: 048
     Dates: start: 20211005

REACTIONS (2)
  - Throat irritation [Recovering/Resolving]
  - Foreign body in throat [Unknown]

NARRATIVE: CASE EVENT DATE: 20211015
